FAERS Safety Report 6058967-4 (Version None)
Quarter: 2009Q1

REPORT INFORMATION
  Report Type: 
  Country: None (occurrence: None)
  Receive Date: 20090130
  Receipt Date: 20090126
  Transmission Date: 20090719
  Serious: Yes (Hospitalization)
  Sender: FDA-Public Use
  Company Number: A0762526A

PATIENT
  Age: 79 Year
  Sex: Male

DRUGS (7)
  1. ADVAIR DISKUS 100/50 [Suspect]
     Indication: CHRONIC OBSTRUCTIVE PULMONARY DISEASE
     Route: 055
     Dates: start: 20000101
  2. DUONEB [Concomitant]
  3. LISINOPRIL [Concomitant]
  4. FRUSEMIDE [Concomitant]
  5. PRILOSEC [Concomitant]
  6. ASPIRIN [Concomitant]
  7. CENTRUM SILVER [Concomitant]

REACTIONS (4)
  - DRUG INEFFECTIVE [None]
  - DYSPNOEA [None]
  - PNEUMONIA [None]
  - PRODUCT QUALITY ISSUE [None]
